FAERS Safety Report 15348259 (Version 2)
Quarter: 2021Q4

REPORT INFORMATION
  Report Type: Spontaneous
  Country: FR (occurrence: FR)
  Receive Date: 20180904
  Receipt Date: 20211118
  Transmission Date: 20220304
  Serious: Yes (Other)
  Sender: FDA-Public Use
  Company Number: None

PATIENT
  Age: 40 Year
  Sex: Male

DRUGS (3)
  1. EPIVIR [Suspect]
     Active Substance: LAMIVUDINE
     Indication: HIV infection
     Dosage: 300 MG, UNK
     Route: 048
     Dates: start: 19990412, end: 20050512
  2. ZERIT [Suspect]
     Active Substance: STAVUDINE
     Indication: HIV infection
     Dosage: UNK
     Route: 048
     Dates: start: 19990412, end: 20000512
  3. SUSTIVA [Concomitant]
     Active Substance: EFAVIRENZ
     Indication: Product used for unknown indication
     Dosage: 600 MG, QD
     Route: 048
     Dates: start: 19990412

REACTIONS (1)
  - Lipodystrophy acquired [Recovered/Resolved]
